FAERS Safety Report 12607530 (Version 1)
Quarter: 2016Q3

REPORT INFORMATION
  Report Type: Report from Study
  Country: BR (occurrence: BR)
  Receive Date: 20160729
  Receipt Date: 20160729
  Transmission Date: 20161109
  Serious: Yes (Hospitalization, Other)
  Sender: FDA-Public Use
  Company Number: PHHY2016BR103229

PATIENT
  Sex: Male
  Weight: 78 kg

DRUGS (5)
  1. DIOVAN [Suspect]
     Active Substance: VALSARTAN
     Dosage: 320 MG, BID
     Route: 048
  2. DIOVAN [Suspect]
     Active Substance: VALSARTAN
     Indication: HYPERTENSION
     Dosage: 160 MG, BID
     Route: 048
     Dates: start: 2016
  3. HYDROCORTISONE. [Concomitant]
     Active Substance: HYDROCORTISONE
     Indication: PRODUCT USED FOR UNKNOWN INDICATION
     Dosage: UNK
     Route: 065
  4. DIOVAN HCT [Suspect]
     Active Substance: HYDROCHLOROTHIAZIDE\VALSARTAN
     Indication: HYPERTENSION
     Dosage: 1 DF (HYDROCHLOROTHIAZIDE 12.5 MG, VALSARTAN 160MG)
     Route: 065
  5. DIOVAN [Suspect]
     Active Substance: VALSARTAN
     Dosage: 1 DF (12.5 MG), BID
     Route: 048

REACTIONS (11)
  - Blood pressure increased [Unknown]
  - Arterial occlusive disease [Unknown]
  - Syncope [Recovered/Resolved]
  - Fall [Recovering/Resolving]
  - Drug ineffective [Unknown]
  - Malaise [Unknown]
  - Hyperhidrosis [Unknown]
  - Polyuria [Recovered/Resolved]
  - Upper limb fracture [Recovering/Resolving]
  - Arrhythmia [Recovering/Resolving]
  - Blood pressure fluctuation [Unknown]
